FAERS Safety Report 18775990 (Version 4)
Quarter: 2022Q1

REPORT INFORMATION
  Report Type: Spontaneous
  Country: CA (occurrence: CA)
  Receive Date: 20210123
  Receipt Date: 20220315
  Transmission Date: 20220423
  Serious: Yes (Other)
  Sender: FDA-Public Use
  Company Number: CA-BOEHRINGERINGELHEIM-2021-BI-077685

PATIENT
  Sex: Female

DRUGS (10)
  1. TIOTROPIUM BROMIDE [Suspect]
     Active Substance: TIOTROPIUM BROMIDE
     Indication: Asthma
  2. BUPROPION [Suspect]
     Active Substance: BUPROPION
     Indication: Product used for unknown indication
  3. ALVESCO [Suspect]
     Active Substance: CICLESONIDE
     Indication: Product used for unknown indication
     Dosage: FORM OF ADMIN.: AEROSOL, METERED DOSE;?UNIT DOSE: 1 DOSAGE FORM
     Route: 055
  4. ALVESCO [Suspect]
     Active Substance: CICLESONIDE
     Dosage: FORM OF ADMIN.: AEROSOL, METERED DOSE;?UNIT DOSE: 1 DOSAGE FORM
     Route: 048
  5. MEPOLIZUMAB [Suspect]
     Active Substance: MEPOLIZUMAB
     Indication: Asthma
  6. MONTELUKAST SODIUM [Suspect]
     Active Substance: MONTELUKAST SODIUM
     Indication: Asthma
     Route: 048
  7. NASONEX [Suspect]
     Active Substance: MOMETASONE FUROATE
     Indication: Product used for unknown indication
     Dosage: FORM OF ADMIN.: SPRAY, METERED DOSE
     Route: 048
  8. BUDESONIDE\FORMOTEROL FUMARATE [Suspect]
     Active Substance: BUDESONIDE\FORMOTEROL FUMARATE
     Indication: Asthma
     Dosage: 1 DOSAGE FORM
     Route: 055
  9. NUCALA [Suspect]
     Active Substance: MEPOLIZUMAB
     Indication: Asthma
     Route: 042
  10. SYMBICORT [Suspect]
     Active Substance: BUDESONIDE\FORMOTEROL FUMARATE DIHYDRATE
     Indication: Asthma
     Dosage: FORM OF ADMIN.: NOT SPECIFIED; 200/6?UNIT DOSE: 2.0 UNKNOWN, 1 EVERY 1 DAY
     Route: 055

REACTIONS (7)
  - Asthma exercise induced [Unknown]
  - Cholelithiasis [Unknown]
  - Factor V Leiden mutation [Unknown]
  - Gestational diabetes [Unknown]
  - Hypertension [Unknown]
  - Rhinitis [Unknown]
  - Sleep apnoea syndrome [Unknown]
